FAERS Safety Report 6715884-1 (Version None)
Quarter: 2010Q2

REPORT INFORMATION
  Report Type: 
  Country: None (occurrence: None)
  Receive Date: 20100507
  Receipt Date: 20100426
  Transmission Date: 20101027
  Serious: Yes (Hospitalization)
  Sender: FDA-Public Use
  Company Number: PHHY2010JP26751

PATIENT
  Age: 69 Year
  Sex: Male

DRUGS (1)
  1. ICL670A ICL+DISTAB [Suspect]
     Indication: IRON OVERLOAD
     Dosage: 1000 MG, UNK
     Route: 048
     Dates: start: 20090901, end: 20100425

REACTIONS (4)
  - CLOSTRIDIAL INFECTION [None]
  - GANGRENE [None]
  - GAS GANGRENE [None]
  - PAIN IN EXTREMITY [None]
